FAERS Safety Report 8104235-6 (Version None)
Quarter: 2012Q1

REPORT INFORMATION
  Report Type: 
  Country: None (occurrence: None)
  Receive Date: 20120201
  Receipt Date: 20120127
  Transmission Date: 20120608
  Serious: Yes (Other)
  Sender: FDA-Public Use
  Company Number: US-BAYER-2012-009629

PATIENT
  Age: 20 Year
  Sex: Female

DRUGS (3)
  1. BACTRIM [Concomitant]
     Dosage: UNK
     Dates: start: 20120124
  2. PREDNISONE TAB [Concomitant]
     Dosage: UNK
     Dates: end: 20120123
  3. AVELOX [Suspect]
     Indication: CHRONIC SINUSITIS
     Dosage: 400 MG, QD
     Route: 048
     Dates: start: 20120109

REACTIONS (2)
  - ANXIETY [None]
  - DYSPNOEA [None]
